FAERS Safety Report 21926095 (Version 4)
Quarter: 2024Q2

REPORT INFORMATION
  Report Type: Report from Study
  Country: FR (occurrence: FR)
  Receive Date: 20230130
  Receipt Date: 20240409
  Transmission Date: 20240716
  Serious: Yes (Death, Hospitalization, Other)
  Sender: FDA-Public Use
  Company Number: FR-ASTELLAS-2023US000745

PATIENT
  Age: 59 Year
  Sex: Male

DRUGS (3)
  1. ENFORTUMAB VEDOTIN-EJFV [Suspect]
     Active Substance: ENFORTUMAB VEDOTIN-EJFV
     Indication: Transitional cell carcinoma metastatic
     Dosage: 1.25 MG/KG, CYCLIC (CYCLE 1, DAY 1)
     Route: 065
     Dates: start: 202212
  2. ENFORTUMAB VEDOTIN-EJFV [Suspect]
     Active Substance: ENFORTUMAB VEDOTIN-EJFV
     Dosage: 1.25 MG/KG, CYCLIC (CYCLE 1, DAY 8)
     Route: 065
  3. ENFORTUMAB VEDOTIN-EJFV [Suspect]
     Active Substance: ENFORTUMAB VEDOTIN-EJFV
     Dosage: 1.25 MG/KG, CYCLIC (CYCLE 1, DAY 15)
     Route: 065
     Dates: start: 20221226, end: 20221226

REACTIONS (4)
  - Skin lesion [Recovered/Resolved]
  - Bone marrow failure [Unknown]
  - Febrile neutropenia [Unknown]
  - Malignant neoplasm progression [Fatal]
